FAERS Safety Report 13011995 (Version 1)
Quarter: 2016Q4

REPORT INFORMATION
  Report Type: Spontaneous
  Country: US (occurrence: US)
  Receive Date: 20161209
  Receipt Date: 20161209
  Transmission Date: 20170207
  Serious: Yes (Hospitalization, Other)
  Sender: FDA-Public Use
  Company Number: US-PROCTER+GAMBLE-GS16147400

PATIENT
  Age: 14 Year
  Sex: Female

DRUGS (9)
  1. CHLORPHENAMINE MALEATE [Suspect]
     Active Substance: CHLORPHENIRAMINE MALEATE
     Route: 048
  2. FLUOXETINE [Suspect]
     Active Substance: FLUOXETINE HYDROCHLORIDE
     Dosage: UNK
     Route: 048
  3. GLUCOSAMINE [Suspect]
     Active Substance: GLUCOSAMINE
     Route: 048
  4. FLUOXETINE [Suspect]
     Active Substance: FLUOXETINE HYDROCHLORIDE
     Dosage: WAS RESTARTED ON HALF OF HER OUTPATIENT DOSE OF 40MG PO DAILY
     Route: 048
  5. MULTIVITAMINS [Suspect]
     Active Substance: VITAMINS
     Dosage: UNK
     Route: 048
  6. DEXTROMETHORPHAN [Suspect]
     Active Substance: DEXTROMETHORPHAN
     Route: 048
  7. PARACETAMOL [Suspect]
     Active Substance: ACETAMINOPHEN
     Route: 048
  8. PHENYLEPHRINE [Suspect]
     Active Substance: PHENYLEPHRINE\PHENYLEPHRINE HYDROCHLORIDE
     Route: 048
  9. FLUOXETINE [Suspect]
     Active Substance: FLUOXETINE HYDROCHLORIDE
     Dosage: 80 MG, DAILY

REACTIONS (5)
  - Pyrexia [Unknown]
  - Drug level increased [Recovering/Resolving]
  - Intentional overdose [Recovered/Resolved]
  - Pneumonia aspiration [Unknown]
  - Depressed level of consciousness [Recovered/Resolved]
